FAERS Safety Report 4801953-X (Version None)
Quarter: 2005Q4

REPORT INFORMATION
  Report Type: 
  Country: None (occurrence: None)
  Receive Date: 20051012
  Receipt Date: 20050926
  Transmission Date: 20060501
  Serious: Yes (Hospitalization, Other)
  Sender: FDA-Public Use
  Company Number: 2005-US-00262

PATIENT
  Sex: Female

DRUGS (7)
  1. CLOZAPINE [Suspect]
     Dosage: ORAL
     Route: 048
     Dates: start: 20001101
  2. FERROUS SULFATE TAB [Concomitant]
  3. FLUPHENAZINE HCL [Concomitant]
  4. RANITIDINE [Concomitant]
  5. BENZTROPINE MESYLATE [Concomitant]
  6. LISINOPRIL [Concomitant]
  7. LEVOTHYROXINE SODIUM [Concomitant]

REACTIONS (1)
  - DIET REFUSAL [None]
